FAERS Safety Report 5913924-0 (Version None)
Quarter: 2008Q4

REPORT INFORMATION
  Report Type: 
  Country: None (occurrence: None)
  Receive Date: 20081009
  Receipt Date: 20081009
  Transmission Date: 20090506
  Serious: Yes (Life-Threatening, Hospitalization)
  Sender: FDA-Public Use
  Company Number: B0540810A

PATIENT
  Age: 77 Year
  Sex: Male

DRUGS (14)
  1. AMOXICILLIN [Suspect]
     Indication: CHRONIC OBSTRUCTIVE PULMONARY DISEASE
     Dosage: 1500MG PER DAY
     Route: 048
     Dates: start: 20080902, end: 20080902
  2. PREDNISOLONE [Suspect]
     Indication: CHRONIC OBSTRUCTIVE PULMONARY DISEASE
     Route: 048
     Dates: start: 20080902
  3. PRAVASTATIN [Concomitant]
     Dosage: 40MG PER DAY
     Route: 048
  4. ALLOPURINOL [Concomitant]
     Dosage: 300MG PER DAY
     Route: 048
  5. OMEPRAZOLE [Concomitant]
     Dosage: 20MG PER DAY
     Route: 048
  6. SENNA [Concomitant]
  7. QUININE SULPHATE [Concomitant]
     Dosage: 200MG PER DAY
  8. FELODIPINE [Concomitant]
     Dosage: 5MG PER DAY
  9. GLUCOSAMINE [Concomitant]
     Dosage: 1500MG PER DAY
  10. ASPIRIN [Concomitant]
     Dosage: 75MG PER DAY
  11. RAMIPRIL [Concomitant]
     Dosage: 10MG PER DAY
  12. NICORANDIL [Concomitant]
     Dosage: 40MG PER DAY
  13. ADCAL D3 [Concomitant]
  14. FUROSEMIDE [Concomitant]
     Dosage: 40MG PER DAY

REACTIONS (2)
  - PHARYNGEAL OEDEMA [None]
  - PRURITUS GENERALISED [None]
